FAERS Safety Report 26051169 (Version 1)
Quarter: 2025Q4

REPORT INFORMATION
  Report Type: Spontaneous
  Country: US (occurrence: US)
  Receive Date: 20251117
  Receipt Date: 20251117
  Transmission Date: 20260118
  Serious: No
  Sender: STRIDES
  Company Number: US-STRIDES ARCOLAB LIMITED-2024SP016500

PATIENT
  Age: 3 Year
  Sex: Female

DRUGS (3)
  1. TOPIRAMATE [Suspect]
     Active Substance: TOPIRAMATE
     Indication: Blount^s disease
     Dosage: 15 MILLIGRAM, BID (CAPSULE)
     Route: 065
  2. TOPIRAMATE [Suspect]
     Active Substance: TOPIRAMATE
     Indication: Weight control
  3. TOPIRAMATE [Suspect]
     Active Substance: TOPIRAMATE
     Indication: Appetite disorder

REACTIONS (2)
  - Treatment noncompliance [Unknown]
  - Drug ineffective for unapproved indication [Unknown]
